FAERS Safety Report 14581366 (Version 2)
Quarter: 2018Q1

REPORT INFORMATION
  Report Type: Spontaneous
  Country: ID (occurrence: ID)
  Receive Date: 20180228
  Receipt Date: 20180312
  Transmission Date: 20180509
  Serious: Yes (Other)
  Sender: FDA-Public Use
  Company Number: ID-BAYER-2018-035449

PATIENT
  Sex: Male

DRUGS (3)
  1. STIVARGA [Suspect]
     Active Substance: REGORAFENIB
     Indication: COLORECTAL CANCER STAGE IV
     Dosage: DAILY DOSE 120 MG
     Route: 048
     Dates: start: 20180226
  2. STIVARGA [Suspect]
     Active Substance: REGORAFENIB
     Indication: COLORECTAL CANCER STAGE IV
     Dosage: DAILY DOSE, 80 MG (2 X 1 TAB)
     Route: 048
  3. STIVARGA [Suspect]
     Active Substance: REGORAFENIB
     Indication: COLORECTAL CANCER STAGE IV
     Dosage: DAILY DOSE, 80 MG (2 X 1 TAB)
     Route: 048

REACTIONS (10)
  - Pain of skin [Not Recovered/Not Resolved]
  - Rash [None]
  - Pain in extremity [None]
  - Carcinoembryonic antigen increased [None]
  - Hyperkeratosis [None]
  - Nausea [None]
  - Dry skin [None]
  - Gingival pain [None]
  - Palmar-plantar erythrodysaesthesia syndrome [None]
  - Gamma-glutamyltransferase increased [None]
